FAERS Safety Report 6936704-6 (Version None)
Quarter: 2010Q3

REPORT INFORMATION
  Report Type: 
  Country: None (occurrence: None)
  Receive Date: 20100818
  Receipt Date: 20100803
  Transmission Date: 20110219
  Serious: Yes (Hospitalization)
  Sender: FDA-Public Use
  Company Number: PHHY2010JP17406

PATIENT
  Age: 77 Year
  Sex: Male
  Weight: 55.0213 kg

DRUGS (2)
  1. VISUDYNE [Suspect]
     Indication: MACULAR DEGENERATION
     Dosage: 4.8 ML ONCE IV
     Route: 042
     Dates: start: 20090904, end: 20090904
  2. VISUDYNE [Suspect]
     Indication: MACULAR DEGENERATION
     Dosage: 4.8 ML ONCE IV
     Route: 042
     Dates: start: 20090612, end: 20090612

REACTIONS (1)
  - CYSTITIS [None]
